FAERS Safety Report 12686301 (Version 1)
Quarter: 2016Q3

REPORT INFORMATION
  Report Type: Report from Study
  Country: US (occurrence: US)
  Receive Date: 20160825
  Receipt Date: 20160825
  Transmission Date: 20161109
  Serious: Yes (Death)
  Sender: FDA-Public Use
  Company Number: US-KAMADA LIMITED-2016US002620

PATIENT

DRUGS (5)
  1. ZESTRIL [Concomitant]
     Active Substance: LISINOPRIL
  2. INSULIN [Concomitant]
     Active Substance: INSULIN NOS
  3. LIPITOR [Concomitant]
     Active Substance: ATORVASTATIN CALCIUM
  4. GLASSIA [Suspect]
     Active Substance: .ALPHA.1-PROTEINASE INHIBITOR HUMAN
     Indication: ALPHA-1 ANTI-TRYPSIN DEFICIENCY
     Dosage: WEEKLY
     Route: 042
     Dates: start: 201410
  5. GLUCOPHAGE [Concomitant]
     Active Substance: METFORMIN HYDROCHLORIDE

REACTIONS (1)
  - Myocardial infarction [Fatal]
